FAERS Safety Report 11991355 (Version 1)
Quarter: 2016Q1

REPORT INFORMATION
  Report Type: Spontaneous
  Country: US (occurrence: None)
  Receive Date: 20160202
  Receipt Date: 20160202
  Transmission Date: 20160526
  Serious: Yes (Other)
  Sender: FDA-Public Use
  Company Number: None

PATIENT
  Age: 48 Year
  Sex: Female
  Weight: 86.18 kg

DRUGS (6)
  1. METHYPHENIDATE ER 36MG-2 TABS DAILY [Suspect]
     Active Substance: METHYLPHENIDATE
     Indication: ATTENTION DEFICIT/HYPERACTIVITY DISORDER
     Dosage: 1 PILL ONCE DAILY TAKEN BY MOUTH
     Route: 048
     Dates: start: 20150901, end: 20160131
  2. LISINOPRIL. [Concomitant]
     Active Substance: LISINOPRIL
  3. METOPROLOL. [Concomitant]
     Active Substance: METOPROLOL
  4. VENLAFAXINE ER [Concomitant]
     Active Substance: VENLAFAXINE HYDROCHLORIDE
  5. LAMOTRIGINE. [Concomitant]
     Active Substance: LAMOTRIGINE
  6. FLUOXETINE [Concomitant]
     Active Substance: FLUOXETINE HYDROCHLORIDE

REACTIONS (8)
  - Apathy [None]
  - Amnesia [None]
  - Product quality issue [None]
  - Mania [None]
  - Disturbance in attention [None]
  - Compulsive shopping [None]
  - Depression [None]
  - Abnormal behaviour [None]

NARRATIVE: CASE EVENT DATE: 20150901
